FAERS Safety Report 16914816 (Version 2)
Quarter: 2019Q4

REPORT INFORMATION
  Report Type: Spontaneous
  Country: MX (occurrence: MX)
  Receive Date: 20191014
  Receipt Date: 20191108
  Transmission Date: 20200122
  Serious: Yes (Death)
  Sender: FDA-Public Use
  Company Number: MX-BIOVITRUM-2019MX3434

PATIENT
  Age: 5 Year

DRUGS (1)
  1. ORFADIN [Suspect]
     Active Substance: NITISINONE
     Indication: TYROSINAEMIA
     Route: 048

REACTIONS (2)
  - Succinylacetone increased [Unknown]
  - Death [Fatal]

NARRATIVE: CASE EVENT DATE: 20180814
